FAERS Safety Report 14409245 (Version 1)
Quarter: 2018Q1

REPORT INFORMATION
  Report Type: Report from Study
  Country: US (occurrence: US)
  Receive Date: 20180119
  Receipt Date: 20180119
  Transmission Date: 20180509
  Serious: Yes (Hospitalization, Other)
  Sender: FDA-Public Use
  Company Number: US-ASTRAZENECA-2017SE88031

PATIENT
  Age: 77 Year
  Sex: Female
  Weight: 90.7 kg

DRUGS (6)
  1. TUDORZA PRESSAIR [Suspect]
     Active Substance: ACLIDINIUM BROMIDE
     Indication: ASTHMA
     Route: 055
     Dates: start: 2016
  2. TUDORZA PRESSAIR [Suspect]
     Active Substance: ACLIDINIUM BROMIDE
     Indication: CHRONIC OBSTRUCTIVE PULMONARY DISEASE
     Route: 055
     Dates: start: 2016
  3. OXYGEN. [Concomitant]
     Active Substance: OXYGEN
     Dosage: AT NIGHT
     Route: 048
  4. TYLENOL [Concomitant]
     Active Substance: ACETAMINOPHEN
     Indication: PAIN
     Dosage: AS REQUIRED
     Route: 048
  5. TUDORZA PRESSAIR [Suspect]
     Active Substance: ACLIDINIUM BROMIDE
     Indication: BRONCHITIS CHRONIC
     Route: 055
     Dates: start: 2016
  6. DALIRESP [Suspect]
     Active Substance: ROFLUMILAST
     Route: 048

REACTIONS (23)
  - Malaise [Unknown]
  - Apparent death [Unknown]
  - Confusional state [Recovered/Resolved]
  - Productive cough [Unknown]
  - Device malfunction [Unknown]
  - Hypoacusis [Unknown]
  - Herpes zoster [Recovered/Resolved]
  - Fatigue [Unknown]
  - Carbon monoxide poisoning [Recovered/Resolved]
  - Drug dose omission [Unknown]
  - Dyspnoea [Unknown]
  - Tympanic membrane perforation [Recovered/Resolved]
  - Chronic obstructive pulmonary disease [Unknown]
  - Tooth disorder [Recovered/Resolved]
  - Weight decreased [Recovered/Resolved]
  - Wheezing [Unknown]
  - Pulmonary congestion [Unknown]
  - Dysphonia [Unknown]
  - Off label use [Unknown]
  - Gas poisoning [Unknown]
  - Pulmonary oedema [Recovered/Resolved]
  - Intentional device misuse [Unknown]
  - Product use in unapproved indication [Unknown]

NARRATIVE: CASE EVENT DATE: 2016
